FAERS Safety Report 7552262-X (Version None)
Quarter: 2011Q2

REPORT INFORMATION
  Report Type: 
  Country: None (occurrence: None)
  Receive Date: 20110616
  Receipt Date: 20110606
  Transmission Date: 20111010
  Serious: Yes (Other)
  Sender: FDA-Public Use
  Company Number: US-MERCK-1106USA00681

PATIENT
  Sex: Female

DRUGS (2)
  1. FOSAMAX [Suspect]
     Route: 048
     Dates: start: 20050101, end: 20060101
  2. FOSAMAX [Suspect]
     Route: 048
     Dates: start: 20060101, end: 20100101

REACTIONS (1)
  - BONE LOSS [None]
